FAERS Safety Report 8518666-3 (Version None)
Quarter: 2012Q3

REPORT INFORMATION
  Report Type: 
  Country: None (occurrence: None)
  Receive Date: 20120718
  Receipt Date: 20110602
  Transmission Date: 20120928
  Serious: No
  Sender: FDA-Public Use
  Company Number: US-BRISTOL-MYERS SQUIBB COMPANY-15800931

PATIENT
  Age: 84 Year
  Sex: Female

DRUGS (9)
  1. NORVASC [Concomitant]
  2. PREVACID [Concomitant]
  3. LASIX [Concomitant]
  4. COUMADIN [Suspect]
     Dosage: TOOK  12 MG
     Dates: start: 19740101
  5. WELCHOL [Concomitant]
  6. AVAPRO [Concomitant]
  7. ZOCOR [Concomitant]
  8. ALDACTONE [Concomitant]
  9. BETAPACE [Concomitant]

REACTIONS (1)
  - INTERNATIONAL NORMALISED RATIO DECREASED [None]
